FAERS Safety Report 22631315 (Version 1)
Quarter: 2023Q2

REPORT INFORMATION
  Report Type: Report from Study
  Country: US (occurrence: US)
  Receive Date: 20230623
  Receipt Date: 20230623
  Transmission Date: 20230722
  Serious: No
  Sender: FDA-Public Use
  Company Number: US-002147023-NVSC2023US136403

PATIENT
  Sex: Male
  Weight: 87.982 kg

DRUGS (2)
  1. TREPROSTINIL [Suspect]
     Active Substance: TREPROSTINIL
     Indication: Pulmonary arterial hypertension
     Dosage: 22NG/KG/MIN
     Route: 042
     Dates: start: 20230525
  2. SILDENAFIL CITRATE [Concomitant]
     Active Substance: SILDENAFIL CITRATE
     Indication: Product used for unknown indication
     Dosage: UNK
     Route: 065

REACTIONS (5)
  - Somnolence [Unknown]
  - Gait disturbance [Unknown]
  - Pain in extremity [Unknown]
  - Headache [Unknown]
  - Pain in jaw [Unknown]
